FAERS Safety Report 9256849 (Version 4)
Quarter: 2013Q4

REPORT INFORMATION
  Report Type: Spontaneous
  Country: GB (occurrence: None)
  Receive Date: 20130423
  Receipt Date: 20131203
  Transmission Date: 20140711
  Serious: Yes (Other)
  Sender: FDA-Public Use
  Company Number: AUR-APU-2013-02180

PATIENT
  Sex: Female

DRUGS (2)
  1. FINASTERIDE [Suspect]
     Indication: PRODUCT USED FOR UNKNOWN INDICATION
  2. FLUOXETINE [Concomitant]

REACTIONS (16)
  - Pruritus [None]
  - Dizziness [None]
  - Pain [None]
  - Tenderness [None]
  - Skin irritation [None]
  - Drug dispensing error [None]
  - Wrong drug administered [None]
  - Hepatic pain [None]
  - Memory impairment [None]
  - Swollen tongue [None]
  - Tongue discolouration [None]
  - Depression [None]
  - Mood swings [None]
  - Lethargy [None]
  - Product label on wrong product [None]
  - Exposure via partner [None]
